FAERS Safety Report 8992465 (Version 1)
Quarter: 2012Q4

REPORT INFORMATION
  Report Type: 
  Country: US (occurrence: US)
  Receive Date: 20121231
  Receipt Date: 20121231
  Transmission Date: 20130627
  Serious: Yes (Other)
  Sender: FDA-Public Use
  Company Number: US-ABBOTT-12P-163-1025853-00

PATIENT
  Sex: Female

DRUGS (2)
  1. DEPAKOTE [Suspect]
     Indication: MATERNAL EXPOSURE TIMING UNSPECIFIED
     Route: 064
  2. TEGRETOL [Suspect]
     Indication: MATERNAL EXPOSURE TIMING UNSPECIFIED
     Route: 064

REACTIONS (5)
  - Mental retardation [Not Recovered/Not Resolved]
  - Premature baby [Recovered/Resolved]
  - Disturbance in social behaviour [Not Recovered/Not Resolved]
  - Brain oedema [Recovered/Resolved]
  - Foetal exposure during pregnancy [Unknown]
